FAERS Safety Report 9409622 (Version 1)
Quarter: 2013Q3

REPORT INFORMATION
  Report Type: Spontaneous
  Country: US (occurrence: US)
  Receive Date: 20130719
  Receipt Date: 20130719
  Transmission Date: 20140515
  Serious: Yes (Hospitalization, Other)
  Sender: FDA-Public Use
  Company Number: PHEH2013US014739

PATIENT
  Age: 66 Year
  Sex: Female

DRUGS (1)
  1. CLOZARIL [Suspect]
     Dosage: UNK UKN, UNK

REACTIONS (6)
  - Urinary tract infection [Unknown]
  - Upper limb fracture [Unknown]
  - Tibia fracture [Unknown]
  - Fibula fracture [Unknown]
  - White blood cell count increased [Unknown]
  - Neutrophil count increased [Unknown]
